FAERS Safety Report 14580000 (Version 1)
Quarter: 2018Q1

REPORT INFORMATION
  Report Type: Spontaneous
  Country: US (occurrence: US)
  Receive Date: 20180228
  Receipt Date: 20180228
  Transmission Date: 20180509
  Serious: Yes (Other)
  Sender: FDA-Public Use
  Company Number: US-UNICHEM PHARMACEUTICALS (USA) INC-UCM201802-000041

PATIENT
  Age: 11 Year
  Sex: Male

DRUGS (4)
  1. LAMOTRIGINE. [Suspect]
     Active Substance: LAMOTRIGINE
     Indication: PETIT MAL EPILEPSY
  2. LAMOTRIGINE. [Suspect]
     Active Substance: LAMOTRIGINE
  3. LAMOTRIGINE. [Suspect]
     Active Substance: LAMOTRIGINE
  4. VALPROATE [Concomitant]
     Active Substance: VALPROIC ACID
     Indication: PETIT MAL EPILEPSY

REACTIONS (5)
  - Oculogyric crisis [Recovered/Resolved]
  - Staring [Recovered/Resolved]
  - Excessive eye blinking [Recovered/Resolved]
  - Toxicity to various agents [Recovered/Resolved]
  - Overdose [Recovered/Resolved]
